FAERS Safety Report 15992275 (Version 2)
Quarter: 2019Q1

REPORT INFORMATION
  Report Type: Spontaneous
  Country: DE (occurrence: DE)
  Receive Date: 20190221
  Receipt Date: 20190226
  Transmission Date: 20190418
  Serious: Yes (Other)
  Sender: FDA-Public Use
  Company Number: PHHY2019DE039672

PATIENT
  Age: 48 Year
  Sex: Male

DRUGS (2)
  1. PEMBROLIZUMAB. [Suspect]
     Active Substance: PEMBROLIZUMAB
     Indication: LUNG ADENOCARCINOMA
     Dosage: 200 MG, QD
     Route: 065
     Dates: start: 20181219
  2. CARBOPLATIN. [Suspect]
     Active Substance: CARBOPLATIN
     Indication: LUNG ADENOCARCINOMA
     Dosage: CARBOPLATIN (AUC 2)
     Route: 065

REACTIONS (2)
  - Mucosal inflammation [Unknown]
  - Dermatitis bullous [Unknown]

NARRATIVE: CASE EVENT DATE: 20181229
